FAERS Safety Report 9941628 (Version 1)
Quarter: 2014Q1

REPORT INFORMATION
  Report Type: Report from Study
  Country: US (occurrence: US)
  Receive Date: 20140303
  Receipt Date: 20140303
  Transmission Date: 20141002
  Serious: Yes (Hospitalization)
  Sender: FDA-Public Use
  Company Number: US-ABBVIE-13P-163-1041691-00

PATIENT
  Age: 43 Year
  Sex: Female
  Weight: 72.64 kg

DRUGS (2)
  1. HUMIRA [Suspect]
     Indication: PSORIASIS
     Dates: end: 201211
  2. ZYRTEC [Concomitant]
     Indication: HYPERSENSITIVITY

REACTIONS (6)
  - Multiple sclerosis [Not Recovered/Not Resolved]
  - Anxiety [Not Recovered/Not Resolved]
  - Breast swelling [Recovered/Resolved]
  - Erythema [Recovered/Resolved]
  - Breast mass [Recovered/Resolved]
  - Mastitis [Recovered/Resolved]
